FAERS Safety Report 12242932 (Version 1)
Quarter: 2016Q2

REPORT INFORMATION
  Report Type: Report from Study
  Country: US (occurrence: US)
  Receive Date: 20160406
  Receipt Date: 20160406
  Transmission Date: 20160815
  Serious: Yes (Other)
  Sender: FDA-Public Use
  Company Number: US-EXELIXIS-XL18416006197

PATIENT
  Age: 60 Year

DRUGS (1)
  1. XL184 [Suspect]
     Active Substance: CABOZANTINIB
     Indication: MALIGNANT MELANOMA
     Dosage: 60 MG, QD
     Route: 048
     Dates: start: 20141118, end: 20160112

REACTIONS (2)
  - Portal vein thrombosis [Unknown]
  - Mesenteric vein thrombosis [Unknown]

NARRATIVE: CASE EVENT DATE: 20160112
